FAERS Safety Report 21321819 (Version 1)
Quarter: 2022Q3

REPORT INFORMATION
  Report Type: Spontaneous
  Country: BR (occurrence: BR)
  Receive Date: 20220912
  Receipt Date: 20220912
  Transmission Date: 20221027
  Serious: Yes (Other)
  Sender: FDA-Public Use
  Company Number: BR-JNJFOC-20220911170

PATIENT
  Weight: 80 kg

DRUGS (1)
  1. SIMPONI [Suspect]
     Active Substance: GOLIMUMAB
     Indication: Colitis
     Route: 058
     Dates: start: 202206

REACTIONS (2)
  - Eosinophilic granulomatosis with polyangiitis [Unknown]
  - Colitis ulcerative [Unknown]
